FAERS Safety Report 9325069 (Version 1)
Quarter: 2013Q2

REPORT INFORMATION
  Report Type: Report from Study
  Country: GB (occurrence: NL)
  Receive Date: 20130603
  Receipt Date: 20130603
  Transmission Date: 20140414
  Serious: Yes (Hospitalization, Other)
  Sender: FDA-Public Use
  Company Number: NL-B.I. PHARMACEUTICALS,INC./RIDGEFIELD-2013-BI-15102GD

PATIENT
  Age: 81 Year
  Sex: Male

DRUGS (2)
  1. TIOTROPIUM [Suspect]
     Indication: CHRONIC OBSTRUCTIVE PULMONARY DISEASE
  2. PULMICORT [Concomitant]

REACTIONS (2)
  - Oropharyngeal candidiasis [Recovered/Resolved]
  - Chronic obstructive pulmonary disease [Recovered/Resolved]
